FAERS Safety Report 9107147 (Version 1)
Quarter: 2013Q1

REPORT INFORMATION
  Report Type: Spontaneous
  Country: US (occurrence: US)
  Receive Date: 20130221
  Receipt Date: 20130221
  Transmission Date: 20140127
  Serious: No
  Sender: FDA-Public Use
  Company Number: US-009507513-1302USA007223

PATIENT
  Sex: Male

DRUGS (4)
  1. COZAAR [Suspect]
     Indication: BLOOD PRESSURE
     Dosage: 100 MG, QD
     Route: 048
     Dates: start: 201202
  2. LOSARTAN POTASSIUM [Suspect]
  3. CARDURA [Concomitant]
     Dosage: UNK
  4. HYDROCHLOROTHIAZIDE [Concomitant]
     Dosage: UNK
     Dates: end: 201208

REACTIONS (2)
  - Fatigue [Unknown]
  - Hypotension [Not Recovered/Not Resolved]
